FAERS Safety Report 8274975-7 (Version None)
Quarter: 2012Q2

REPORT INFORMATION
  Report Type: 
  Country: None (occurrence: None)
  Receive Date: 20120411
  Receipt Date: 20120404
  Transmission Date: 20120825
  Serious: Yes (Hospitalization, Other)
  Sender: FDA-Public Use
  Company Number: US-ALLERGAN-1106983US

PATIENT
  Age: 25 Year
  Sex: Male

DRUGS (1)
  1. BOTULINUM TOXIN TYPE A [Suspect]
     Indication: MUSCLE SPASTICITY
     Dosage: 250 UNITS, SINGLE
     Route: 030
     Dates: start: 20030618, end: 20030618

REACTIONS (9)
  - DYSPHAGIA [None]
  - STRIDOR [None]
  - HYPOXIA [None]
  - RESPIRATORY DISTRESS [None]
  - SECRETION DISCHARGE [None]
  - FAILURE TO THRIVE [None]
  - DYSPNOEA [None]
  - PYREXIA [None]
  - LIVEDO RETICULARIS [None]
